FAERS Safety Report 16141447 (Version 1)
Quarter: 2019Q2

REPORT INFORMATION
  Report Type: Spontaneous
  Country: US (occurrence: US)
  Receive Date: 20190401
  Receipt Date: 20190401
  Transmission Date: 20190711
  Serious: No
  Sender: FDA-Public Use
  Company Number: US-BAYER-2019-061987

PATIENT
  Age: 78 Year
  Sex: Female
  Weight: 91.16 kg

DRUGS (4)
  1. OPSUMIT [Suspect]
     Active Substance: MACITENTAN
     Indication: PULMONARY ARTERIAL HYPERTENSION
     Dosage: UNK
     Route: 055
     Dates: start: 20180924
  2. WARFARIN [Concomitant]
     Active Substance: WARFARIN
  3. TYVASO [Suspect]
     Active Substance: TREPROSTINIL
     Indication: PULMONARY ARTERIAL HYPERTENSION
     Dosage: UNK
     Route: 055
     Dates: start: 20180924
  4. ADEMPAS [Suspect]
     Active Substance: RIOCIGUAT

REACTIONS (6)
  - Productive cough [None]
  - Weight decreased [None]
  - Cough [None]
  - Dyspnoea [None]
  - Decreased appetite [None]
  - Sputum discoloured [None]
